FAERS Safety Report 6462665-2 (Version None)
Quarter: 2009Q4

REPORT INFORMATION
  Report Type: 
  Country: None (occurrence: None)
  Receive Date: 20091130
  Receipt Date: 20091120
  Transmission Date: 20100525
  Serious: Yes (Death, Other)
  Sender: FDA-Public Use
  Company Number: US-TYCO HEALTHCARE/MALLINCKRODT-T200901872

PATIENT
  Sex: Female

DRUGS (22)
  1. OMNISCAN [Suspect]
     Indication: NUCLEAR MAGNETIC RESONANCE IMAGING BRAIN
     Dosage: UNK
     Route: 042
     Dates: start: 20040601, end: 20040601
  2. OMNISCAN [Suspect]
     Dosage: UNK
     Route: 042
     Dates: start: 20040706, end: 20040706
  3. OMNISCAN [Suspect]
     Dosage: UNK
     Route: 042
     Dates: start: 20041223, end: 20041223
  4. OMNISCAN [Suspect]
     Dosage: UNK
     Route: 042
     Dates: start: 20050108, end: 20050108
  5. OMNISCAN [Suspect]
     Dosage: UNK
     Route: 042
     Dates: start: 20050227, end: 20050227
  6. MAGNEVIST [Suspect]
     Indication: NUCLEAR MAGNETIC RESONANCE IMAGING BRAIN
     Dosage: UNK
     Dates: start: 20060629, end: 20060629
  7. VALPROIC ACID [Concomitant]
     Indication: CONVULSION
     Dosage: Q8H
  8. METOPROLOL [Concomitant]
     Indication: HYPERTENSION
     Dosage: 1 TAB, BID
  9. DIATZ ZN [Concomitant]
     Indication: CARDIAC DISORDER
     Dosage: 1 QD
  10. PREDNISONE [Concomitant]
     Indication: GOODPASTURE'S SYNDROME
     Dosage: 1.5 TABLET QD
  11. LISINOPRIL [Concomitant]
     Indication: HYPERTENSION
     Dosage: 2 TAB QD
  12. AMRIX [Concomitant]
     Indication: PAIN
     Dosage: 1 TABLET EVERY 8 HRS
  13. AMRIX [Concomitant]
     Indication: MUSCLE RELAXANT THERAPY
  14. DIOVAN                             /01319601/ [Concomitant]
     Indication: HYPERTENSION
     Dosage: 1 TABLET QD
  15. DIOVAN                             /01319601/ [Concomitant]
     Indication: CARDIAC FAILURE CONGESTIVE
  16. LEXAPRO [Concomitant]
     Indication: DEPRESSION
     Dosage: 1 TABLET QD
  17. MEGESTROL [Concomitant]
     Indication: HORMONE THERAPY
     Dosage: 1 TABLET TID
  18. PREVACID [Concomitant]
     Indication: DYSPEPSIA
     Dosage: 1 QD
  19. PROPO N/APAP [Concomitant]
     Indication: ARTHRALGIA
     Dosage: 1 TAB BID
  20. RENAGEL                            /01459901/ [Concomitant]
     Indication: RENAL FAILURE
     Dosage: 2 TABLETS BID
  21. KEPPRA [Concomitant]
     Indication: CONVULSION
     Dosage: 2 TABLETS Q12HR
  22. IRON SUCROSE [Concomitant]
     Indication: IRON DEFICIENCY
     Route: 042

REACTIONS (1)
  - NEPHROGENIC SYSTEMIC FIBROSIS [None]
